FAERS Safety Report 20694377 (Version 9)
Quarter: 2024Q4

REPORT INFORMATION
  Report Type: Spontaneous
  Country: US (occurrence: US)
  Receive Date: 20220411
  Receipt Date: 20241212
  Transmission Date: 20250114
  Serious: Yes (Disabling, Other)
  Sender: PFIZER
  Company Number: US-PFIZER INC-202200502260

PATIENT
  Age: 74 Year
  Sex: Female
  Weight: 69.388 kg

DRUGS (1)
  1. PREMARIN [Suspect]
     Active Substance: ESTROGENS, CONJUGATED
     Dosage: UNK

REACTIONS (4)
  - Brain operation [Unknown]
  - Walking disability [Unknown]
  - Sudden hearing loss [Unknown]
  - Neck pain [Unknown]
